FAERS Safety Report 23824857 (Version 1)
Quarter: 2024Q2

REPORT INFORMATION
  Report Type: Spontaneous
  Country: DE (occurrence: DE)
  Receive Date: 20240507
  Receipt Date: 20240507
  Transmission Date: 20240716
  Serious: Yes (Life-Threatening, Hospitalization, Other)
  Sender: FDA-Public Use
  Company Number: DE-MLMSERVICE-20240417-PI030789-00091-1

PATIENT
  Age: 50 Year
  Sex: Male

DRUGS (1)
  1. CELECOXIB [Suspect]
     Active Substance: CELECOXIB
     Indication: Ankylosing spondylitis

REACTIONS (3)
  - Hypoxia [Unknown]
  - Myocardial oedema [Unknown]
  - Acute respiratory distress syndrome [Unknown]
